FAERS Safety Report 4429505-4 (Version None)
Quarter: 2004Q3

REPORT INFORMATION
  Report Type: 
  Country: None (occurrence: None)
  Receive Date: 20040819
  Receipt Date: 20040813
  Transmission Date: 20050211
  Serious: Yes (Disabling, Congenital Anomaly)
  Sender: FDA-Public Use
  Company Number: FR-ROCHE-377518

PATIENT
  Age: 30 Year
  Sex: Male

DRUGS (1)
  1. ROACCUTANE [Suspect]
     Indication: DRUG USE FOR UNKNOWN INDICATION
     Route: 065

REACTIONS (2)
  - CONGENITAL HAND MALFORMATION [None]
  - TRANSMISSION OF DRUG VIA SEMEN [None]
